FAERS Safety Report 7653818-6 (Version None)
Quarter: 2011Q3

REPORT INFORMATION
  Report Type: 
  Country: None (occurrence: None)
  Receive Date: 20110801
  Receipt Date: 20110801
  Transmission Date: 20111222
  Serious: Yes (Other)
  Sender: FDA-Public Use
  Company Number: None

PATIENT
  Sex: Male
  Weight: 113.6 kg

DRUGS (15)
  1. DUTASTERIDE [Concomitant]
  2. LAPATINIB [Suspect]
     Indication: PROSTATE CANCER
     Dosage: 500 MG DAILY ORAL
     Route: 048
     Dates: start: 20110701, end: 20110714
  3. KETOCONAZOLE [Concomitant]
  4. CEREFOLIN NAC [Concomitant]
  5. ASPIRIN [Concomitant]
  6. DIOVAN [Concomitant]
  7. AMLODIPINE [Concomitant]
  8. HYDROMORPHONE HCL [Concomitant]
  9. ADVIL LIQUI-GELS [Concomitant]
  10. FENOFIBRATE [Concomitant]
  11. HYDROCHLOROTHIAZIDE [Concomitant]
  12. AGGRENOX [Concomitant]
  13. EFFEXOR [Concomitant]
  14. HYDROCRTISONE [Concomitant]
  15. LUPRON DEPOT [Concomitant]

REACTIONS (3)
  - BUNDLE BRANCH BLOCK LEFT [None]
  - ELECTROCARDIOGRAM QT PROLONGED [None]
  - CONDUCTION DISORDER [None]
